FAERS Safety Report 18157188 (Version 2)
Quarter: 2020Q4

REPORT INFORMATION
  Report Type: Spontaneous
  Country: US (occurrence: US)
  Receive Date: 20200817
  Receipt Date: 20201020
  Transmission Date: 20210113
  Serious: Yes (Other)
  Sender: FDA-Public Use
  Company Number: US-HIKMA PHARMACEUTICALS USA INC.-US-H14001-20-03849

PATIENT
  Age: 48 Year
  Sex: Female

DRUGS (26)
  1. DOXORUBICIN [Suspect]
     Active Substance: DOXORUBICIN
     Indication: LYMPHOPLASMACYTOID LYMPHOMA/IMMUNOCYTOMA
  2. PREDNISONE. [Suspect]
     Active Substance: PREDNISONE
     Indication: MARGINAL ZONE LYMPHOMA
     Dosage: UNKNOWN
     Route: 065
  3. RITUXIMAB. [Suspect]
     Active Substance: RITUXIMAB
     Indication: LARGE GRANULAR LYMPHOCYTOSIS
     Dosage: UNKNOWN
     Route: 065
  4. CYCLOPHOSPHAMIDE. [Suspect]
     Active Substance: CYCLOPHOSPHAMIDE
     Indication: MARGINAL ZONE LYMPHOMA
  5. CYCLOPHOSPHAMIDE. [Suspect]
     Active Substance: CYCLOPHOSPHAMIDE
     Indication: LYMPHOPLASMACYTOID LYMPHOMA/IMMUNOCYTOMA
  6. DOXORUBICIN [Suspect]
     Active Substance: DOXORUBICIN
     Indication: PLASMACYTOMA
  7. DOXORUBICIN [Suspect]
     Active Substance: DOXORUBICIN
     Indication: MARGINAL ZONE LYMPHOMA
  8. PREDNISONE. [Suspect]
     Active Substance: PREDNISONE
     Indication: LYMPHOPLASMACYTOID LYMPHOMA/IMMUNOCYTOMA
  9. CYCLOPHOSPHAMIDE. [Suspect]
     Active Substance: CYCLOPHOSPHAMIDE
     Indication: LARGE GRANULAR LYMPHOCYTOSIS
     Dosage: UNKNOWN
     Route: 065
  10. VINCRISTINE [Suspect]
     Active Substance: VINCRISTINE
     Indication: LARGE GRANULAR LYMPHOCYTOSIS
  11. RITUXIMAB. [Suspect]
     Active Substance: RITUXIMAB
     Indication: LYMPHOPLASMACYTOID LYMPHOMA/IMMUNOCYTOMA
  12. DOXORUBICIN [Suspect]
     Active Substance: DOXORUBICIN
     Indication: LARGE GRANULAR LYMPHOCYTOSIS
  13. PREDNISONE. [Suspect]
     Active Substance: PREDNISONE
     Indication: PLASMACYTOMA
  14. PREDNISONE. [Suspect]
     Active Substance: PREDNISONE
     Indication: LARGE GRANULAR LYMPHOCYTOSIS
  15. RITUXIMAB. [Suspect]
     Active Substance: RITUXIMAB
     Indication: PLASMACYTOMA
  16. DOXORUBICIN [Suspect]
     Active Substance: DOXORUBICIN
     Indication: LARGE GRANULAR LYMPHOCYTOSIS
     Dosage: UNKNOWN
     Route: 065
  17. PREDNISONE. [Suspect]
     Active Substance: PREDNISONE
     Indication: LARGE GRANULAR LYMPHOCYTOSIS
  18. VINCRISTINE [Suspect]
     Active Substance: VINCRISTINE
     Indication: LYMPHOPLASMACYTOID LYMPHOMA/IMMUNOCYTOMA
     Dosage: UNKNOWN
     Route: 065
  19. VINCRISTINE [Suspect]
     Active Substance: VINCRISTINE
     Indication: PLASMACYTOMA
  20. CYCLOPHOSPHAMIDE. [Suspect]
     Active Substance: CYCLOPHOSPHAMIDE
     Indication: LARGE GRANULAR LYMPHOCYTOSIS
  21. CYCLOPHOSPHAMIDE. [Suspect]
     Active Substance: CYCLOPHOSPHAMIDE
     Indication: PLASMACYTOMA
  22. VINCRISTINE [Suspect]
     Active Substance: VINCRISTINE
     Indication: MARGINAL ZONE LYMPHOMA
  23. RITUXIMAB. [Suspect]
     Active Substance: RITUXIMAB
     Indication: LARGE GRANULAR LYMPHOCYTOSIS
  24. RITUXIMAB. [Suspect]
     Active Substance: RITUXIMAB
     Indication: MARGINAL ZONE LYMPHOMA
  25. VINCRISTINE [Suspect]
     Active Substance: VINCRISTINE
     Indication: LARGE GRANULAR LYMPHOCYTOSIS
  26. DEXAMETHASONE. [Concomitant]
     Active Substance: DEXAMETHASONE
     Indication: PRODUCT USED FOR UNKNOWN INDICATION
     Dosage: UNKNOWN
     Route: 065

REACTIONS (1)
  - Ejection fraction decreased [Unknown]
